FAERS Safety Report 10231999 (Version 1)
Quarter: 2014Q2

REPORT INFORMATION
  Report Type: Spontaneous
  Country: IT (occurrence: IT)
  Receive Date: 20140612
  Receipt Date: 20140612
  Transmission Date: 20141212
  Serious: Yes (Other)
  Sender: FDA-Public Use
  Company Number: IT-BRISTOL-MYERS SQUIBB COMPANY-20946422

PATIENT
  Age: 82 Year
  Sex: Male

DRUGS (3)
  1. COUMADIN TABS 5 MG [Suspect]
     Indication: ATRIAL FIBRILLATION
     Dosage: LAST DOSE: 16-JAN-2014
     Route: 048
     Dates: start: 20130101
  2. METFORMIN [Concomitant]
     Dosage: TABS
     Route: 048
  3. DIAMICRON [Concomitant]
     Dosage: TABS
     Route: 048

REACTIONS (2)
  - Microcytic anaemia [Recovering/Resolving]
  - Epistaxis [Recovering/Resolving]
